FAERS Safety Report 10362881 (Version 2)
Quarter: 2014Q3

REPORT INFORMATION
  Report Type: Spontaneous
  Country: US (occurrence: US)
  Receive Date: 20140805
  Receipt Date: 20140917
  Transmission Date: 20150326
  Serious: Yes (Hospitalization, Other)
  Sender: FDA-Public Use
  Company Number: US-RB PHARMACEUTICALS LIMITED-RB-70191-2014

PATIENT

DRUGS (2)
  1. NICOTINE. [Suspect]
     Active Substance: NICOTINE
     Indication: NICOTINE DEPENDENCE
     Dosage: 1-2 CIGARETTES WEEKLY
     Route: 064
     Dates: start: 201201, end: 20121027
  2. SUBOXONE [Suspect]
     Active Substance: BUPRENORPHINE HYDROCHLORIDE\NALOXONE HYDROCHLORIDE
     Indication: DRUG DEPENDENCE
     Dosage: 32 MG, QD
     Route: 064
     Dates: start: 201201, end: 20121027

REACTIONS (5)
  - Drug withdrawal syndrome neonatal [Recovered/Resolved]
  - Sneezing [Recovered/Resolved]
  - Foetal exposure during pregnancy [Recovered/Resolved]
  - Investigation [Recovered/Resolved]
  - Maternal drugs affecting foetus [None]

NARRATIVE: CASE EVENT DATE: 201201
